FAERS Safety Report 19067832 (Version 1)
Quarter: 2021Q1

REPORT INFORMATION
  Report Type: Spontaneous
  Country: GB (occurrence: GB)
  Receive Date: 20210329
  Receipt Date: 20210329
  Transmission Date: 20210420
  Serious: Yes (Hospitalization)
  Sender: FDA-Public Use
  Company Number: GB-PFIZER INC-2021303419

PATIENT
  Age: 34 Year
  Sex: Female

DRUGS (1)
  1. XELJANZ [Suspect]
     Active Substance: TOFACITINIB CITRATE
     Dosage: 5 MG
     Route: 048

REACTIONS (5)
  - Rash [Unknown]
  - Influenza like illness [Unknown]
  - Arthralgia [Unknown]
  - Pain in extremity [Unknown]
  - Eye swelling [Unknown]
